FAERS Safety Report 5551739-6 (Version None)
Quarter: 2007Q4

REPORT INFORMATION
  Report Type: 
  Country: None (occurrence: None)
  Receive Date: 20071212
  Receipt Date: 20070601
  Transmission Date: 20080405
  Serious: No
  Sender: FDA-Public Use
  Company Number: US-AMGEN-KDL227413

PATIENT
  Sex: Female

DRUGS (1)
  1. ENBREL [Suspect]
     Indication: RHEUMATOID ARTHRITIS
     Route: 058
     Dates: start: 20030930

REACTIONS (6)
  - DIARRHOEA [None]
  - DYSURIA [None]
  - HEADACHE [None]
  - NAUSEA [None]
  - NECK PAIN [None]
  - OCULAR HYPERAEMIA [None]
